FAERS Safety Report 7520033-6 (Version None)
Quarter: 2011Q2

REPORT INFORMATION
  Report Type: 
  Country: None (occurrence: None)
  Receive Date: 20110602
  Receipt Date: 20110516
  Transmission Date: 20111010
  Serious: Yes (Death, Hospitalization, Other)
  Sender: FDA-Public Use
  Company Number: DE-ACTELION-A-US2011-46512

PATIENT

DRUGS (2)
  1. TRACLEER [Concomitant]
     Indication: PULMONARY ARTERIAL HYPERTENSION
     Dosage: UNK
     Route: 048
     Dates: start: 20101215, end: 20110223
  2. VENTAVIS [Suspect]
     Indication: PULMONARY HYPERTENSION
     Dosage: 5 UG, Q4HRS
     Route: 055
     Dates: start: 20090225, end: 20110223

REACTIONS (17)
  - RIGHT VENTRICULAR FAILURE [None]
  - ANXIETY [None]
  - HYPERVENTILATION [None]
  - LEUKOCYTOSIS [None]
  - SYNCOPE [None]
  - COR PULMONALE [None]
  - MYOCARDITIS POST INFECTION [None]
  - MENORRHAGIA [None]
  - BRADYCARDIA [None]
  - NAUSEA [None]
  - ABDOMINAL PAIN LOWER [None]
  - SEPSIS [None]
  - PULMONARY ARTERIAL HYPERTENSION [None]
  - VIRAL INFECTION [None]
  - RESTLESSNESS [None]
  - DISEASE PROGRESSION [None]
  - RESPIRATORY TRACT INFECTION [None]
